FAERS Safety Report 18378300 (Version 1)
Quarter: 2020Q4

REPORT INFORMATION
  Report Type: Report from Study
  Country: US (occurrence: US)
  Receive Date: 20201013
  Receipt Date: 20201013
  Transmission Date: 20210114
  Serious: Yes (Hospitalization, Other)
  Sender: FDA-Public Use
  Company Number: US-BRISTOL-MYERS SQUIBB COMPANY-BMS-2020-082598

PATIENT
  Age: 63 Year
  Sex: Female
  Weight: 50.1 kg

DRUGS (2)
  1. IPILIMUMAB [Suspect]
     Active Substance: IPILIMUMAB
     Indication: RENAL CELL CARCINOMA
     Dosage: 48.1 MILLIGRAM
     Route: 065
     Dates: start: 20200514, end: 20200820
  2. NIVOLUMAB [Suspect]
     Active Substance: NIVOLUMAB
     Indication: RENAL CELL CARCINOMA
     Dosage: 144.3 MILLIGRAM
     Route: 065
     Dates: start: 20200514, end: 20200820

REACTIONS (5)
  - Hyperphosphataemia [Recovering/Resolving]
  - Hyperkalaemia [Recovering/Resolving]
  - Renal vein thrombosis [Recovering/Resolving]
  - Blood creatinine increased [Recovering/Resolving]
  - Acute kidney injury [Recovering/Resolving]

NARRATIVE: CASE EVENT DATE: 20200909
